FAERS Safety Report 12052195 (Version 1)
Quarter: 2016Q1

REPORT INFORMATION
  Report Type: Spontaneous
  Country: US (occurrence: None)
  Receive Date: 20160208
  Receipt Date: 20160208
  Transmission Date: 20160526
  Serious: Yes (Hospitalization)
  Sender: FDA-Public Use
  Company Number: None

PATIENT
  Age: 72 Year
  Sex: Female
  Weight: 108 kg

DRUGS (16)
  1. DOXAZOSIN [Concomitant]
     Active Substance: DOXAZOSIN\DOXAZOSIN MESYLATE
  2. ATORVASTATIN [Concomitant]
     Active Substance: ATORVASTATIN
  3. NEPHROCAPS [Concomitant]
     Active Substance: ASCORBIC ACID\BIOTIN\CYANOCOBALAMIN\FOLIC ACID\NIACIN\PANTOTHENIC ACID\PYRIDOXINE\RIBOFLAVIN\THIAMINE
  4. ASA [Concomitant]
     Active Substance: ASPIRIN
  5. MINOXIDIL 5MG UNKNOWN [Suspect]
     Active Substance: MINOXIDIL
     Indication: HYPERTENSION
     Route: 048
     Dates: start: 20160202, end: 20160203
  6. PLAVIX [Concomitant]
     Active Substance: CLOPIDOGREL BISULFATE
  7. METOPROLOL TARTRATE. [Concomitant]
     Active Substance: METOPROLOL TARTRATE
  8. MVI [Concomitant]
     Active Substance: VITAMINS
  9. BUMEX [Concomitant]
     Active Substance: BUMETANIDE
  10. HYDRALAZINE [Concomitant]
     Active Substance: HYDRALAZINE HYDROCHLORIDE
  11. CHOLECALCIFEROL [Concomitant]
     Active Substance: CHOLECALCIFEROL
  12. FERROUS SULFATE [Concomitant]
     Active Substance: FERROUS SULFATE\FERROUS SULFATE, DRIED
  13. KCL [Concomitant]
     Active Substance: POTASSIUM CHLORIDE
  14. METOLAZONE. [Concomitant]
     Active Substance: METOLAZONE
  15. CLONIDINE. [Concomitant]
     Active Substance: CLONIDINE
  16. DOCUSATE [Concomitant]
     Active Substance: DOCUSATE

REACTIONS (8)
  - Eye swelling [None]
  - Respiratory tract oedema [None]
  - Local swelling [None]
  - Angioedema [None]
  - Peripheral swelling [None]
  - Increased bronchial secretion [None]
  - Lip swelling [None]
  - Hypersensitivity [None]

NARRATIVE: CASE EVENT DATE: 20160203
